FAERS Safety Report 23139698 (Version 1)
Quarter: 2023Q4

REPORT INFORMATION
  Report Type: Spontaneous
  Country: US (occurrence: US)
  Receive Date: 20231102
  Receipt Date: 20231102
  Transmission Date: 20240110
  Serious: No
  Sender: FDA-Public Use
  Company Number: US-BIOVITRUM-2023-US-009547

PATIENT
  Age: 78 Year
  Sex: Female

DRUGS (2)
  1. KINERET [Suspect]
     Active Substance: ANAKINRA
     Indication: Rheumatoid arthritis
     Dosage: 100 MG/ 0.67 ML?DAILY (QF)
     Route: 058
  2. KINERET [Suspect]
     Active Substance: ANAKINRA
     Dosage: QF
     Route: 058

REACTIONS (3)
  - Product dose omission issue [Unknown]
  - Syringe issue [Unknown]
  - COVID-19 [Unknown]
